FAERS Safety Report 12241591 (Version 1)
Quarter: 2016Q2

REPORT INFORMATION
  Report Type: Report from Study
  Country: JP (occurrence: JP)
  Receive Date: 20160406
  Receipt Date: 20160406
  Transmission Date: 20160815
  Serious: Yes (Other)
  Sender: FDA-Public Use
  Company Number: JP-BIOVITRUM-2016JP0224

PATIENT
  Age: 18 Year
  Weight: 85 kg

DRUGS (3)
  1. ORFADIN [Suspect]
     Active Substance: NITISINONE
     Indication: TYROSINAEMIA
     Route: 048
     Dates: start: 19970512
  2. SULPIRIDE [Suspect]
     Active Substance: SULPIRIDE
     Indication: DEPRESSION
     Route: 048
     Dates: start: 20150615, end: 20150827
  3. DEZOLAM [Suspect]
     Active Substance: ETIZOLAM
     Indication: DEPRESSION
     Route: 048
     Dates: start: 20150615, end: 20150827

REACTIONS (4)
  - Amino acid level increased [Recovered/Resolved]
  - Pharyngitis [Recovered/Resolved]
  - Total bile acids increased [Recovered/Resolved]
  - Depression [Recovered/Resolved]

NARRATIVE: CASE EVENT DATE: 20150422
